FAERS Safety Report 13498554 (Version 1)
Quarter: 2017Q2

REPORT INFORMATION
  Report Type: Report from Study
  Country: BR (occurrence: BR)
  Receive Date: 20170501
  Receipt Date: 20170501
  Transmission Date: 20170830
  Serious: Yes (Other)
  Sender: FDA-Public Use
  Company Number: BR-SUN PHARMACEUTICAL INDUSTRIES LTD-2017US-139257

PATIENT
  Sex: Male

DRUGS (5)
  1. LAMIVUDINE/EFAVIRENZ/TENOFOVIR [Suspect]
     Active Substance: EFAVIRENZ\LAMIVUDINE\TENOFOVIR
     Indication: HIV INFECTION
     Dosage: 1200 MG, DAILY
     Route: 064
     Dates: start: 20161005, end: 20170327
  2. RETROVIR [Suspect]
     Active Substance: ZIDOVUDINE
     Indication: HIV INFECTION
     Dosage: 2 MG/KG/H, DAILY
     Route: 064
     Dates: start: 20170327, end: 20170327
  3. FOLIC ACID. [Suspect]
     Active Substance: FOLIC ACID
     Indication: PRODUCT USED FOR UNKNOWN INDICATION
     Dosage: UNK
     Route: 064
     Dates: end: 20170327
  4. RETROVIR [Suspect]
     Active Substance: ZIDOVUDINE
     Dosage: 1 MG/KG/H, DAILY
     Route: 064
     Dates: start: 20170327, end: 20170327
  5. FERROUS SULFATE. [Suspect]
     Active Substance: FERROUS SULFATE
     Indication: PRODUCT USED FOR UNKNOWN INDICATION
     Dosage: UNK
     Route: 064
     Dates: end: 20170327

REACTIONS (2)
  - Congenital naevus [Unknown]
  - Foetal exposure during pregnancy [Recovered/Resolved]

NARRATIVE: CASE EVENT DATE: 2016
